FAERS Safety Report 5483310-9 (Version None)
Quarter: 2007Q4

REPORT INFORMATION
  Report Type: 
  Country: None (occurrence: None)
  Receive Date: 20071012
  Receipt Date: 20071003
  Transmission Date: 20080405
  Serious: Yes (Other)
  Sender: FDA-Public Use
  Company Number: PHBS2003HR13840

PATIENT
  Age: 47 Year
  Sex: Male
  Weight: 103 kg

DRUGS (7)
  1. RISPERIDONE [Concomitant]
     Dosage: 2 MG/D
     Route: 065
  2. RISPERIDONE [Concomitant]
     Dosage: 6 MG/D
     Route: 065
  3. LEPONEX [Suspect]
     Indication: EXTRAPYRAMIDAL DISORDER
     Dosage: 200 MG/D
     Route: 065
  4. LEPONEX [Suspect]
     Dosage: 100 MG/D
     Route: 065
  5. LEPONEX [Suspect]
     Dosage: 50 MG/D
     Route: 065
  6. DIAZEPAM [Concomitant]
     Dosage: 10 MG/D
     Route: 065
  7. DIAZEPAM [Concomitant]
     Dosage: 25 MG/D
     Route: 065

REACTIONS (11)
  - BLOOD GLUCOSE INCREASED [None]
  - DIABETES MELLITUS [None]
  - DRY MOUTH [None]
  - GLYCOSYLATED HAEMOGLOBIN INCREASED [None]
  - HYPERCHOLESTEROLAEMIA [None]
  - HYPERGLYCAEMIA [None]
  - HYPERLIPIDAEMIA [None]
  - KETONURIA [None]
  - METABOLIC DISORDER [None]
  - POLLAKIURIA [None]
  - WEIGHT DECREASED [None]
